FAERS Safety Report 18709869 (Version 2)
Quarter: 2021Q1

REPORT INFORMATION
  Report Type: Report from Study
  Country: AT (occurrence: AT)
  Receive Date: 20210106
  Receipt Date: 20210112
  Transmission Date: 20210419
  Serious: Yes (Death, Other)
  Sender: FDA-Public Use
  Company Number: NVSC2021AT002208

PATIENT
  Age: 13 Month
  Sex: Female
  Weight: 6 kg

DRUGS (3)
  1. TRAMETINIB [Suspect]
     Active Substance: TRAMETINIB
     Indication: GENE MUTATION
     Dosage: 0.0125 MG/KG
     Route: 048
     Dates: start: 20200316, end: 20210103
  2. SILDENAFIL. [Concomitant]
     Active Substance: SILDENAFIL
     Indication: PULMONARY HYPERTENSION
     Dosage: 1.5 MG, TID
     Route: 065
     Dates: start: 20200408
  3. PROPRANOLOL [Concomitant]
     Active Substance: PROPRANOLOL HYDROCHLORIDE
     Indication: CARDIOMYOPATHY
     Dosage: 4 MG, TID
     Route: 065
     Dates: start: 20200214

REACTIONS (3)
  - Cardiomegaly [Fatal]
  - Respiratory tract infection [Unknown]
  - Pulmonary hypertension [Fatal]
